FAERS Safety Report 10022733 (Version 1)
Quarter: 2014Q1

REPORT INFORMATION
  Report Type: Spontaneous
  Country: US (occurrence: US)
  Receive Date: 20140319
  Receipt Date: 20140319
  Transmission Date: 20141002
  Serious: Yes (Hospitalization)
  Sender: FDA-Public Use
  Company Number: US-B.I. PHARMACEUTICALS,INC./RIDGEFIELD-2014-BI-11495BP

PATIENT
  Age: 58 Year
  Sex: Male
  Weight: 79 kg

DRUGS (6)
  1. PRADAXA [Suspect]
     Indication: ATRIAL FIBRILLATION
     Dosage: 300 MG
     Route: 048
     Dates: start: 20140221, end: 20140228
  2. BYSTOLIC [Concomitant]
     Indication: HYPERTENSION
     Dosage: 10 MG
     Route: 048
  3. LISINOPRIL [Concomitant]
     Indication: HYPERTENSION
     Dosage: 10 MG
     Route: 048
  4. LOVAZA [Concomitant]
     Indication: BLOOD CHOLESTEROL INCREASED
     Dosage: 1 G
     Route: 048
  5. OMEPRAZOLE/SODIUM BICARBONATE [Concomitant]
     Indication: GASTROOESOPHAGEAL REFLUX DISEASE
     Dosage: DOSE PER APPLICATION: 40MG/1100MG; DAILY DOSE: 40MG/1100MG
     Route: 048
  6. DILAUDID [Concomitant]
     Indication: PROCEDURAL PAIN
     Route: 065
     Dates: start: 20140221, end: 20140222

REACTIONS (2)
  - Transient ischaemic attack [Recovered/Resolved]
  - Amnesia [Not Recovered/Not Resolved]
